FAERS Safety Report 9734319 (Version 2)
Quarter: 2013Q4

REPORT INFORMATION
  Report Type: Spontaneous
  Country: DE (occurrence: DE)
  Receive Date: 20131206
  Receipt Date: 20131206
  Transmission Date: 20140711
  Serious: Yes (Hospitalization, Other)
  Sender: FDA-Public Use
  Company Number: DE-ROCHE-1290456

PATIENT
  Age: 23 Year
  Sex: Female
  Weight: 72 kg

DRUGS (7)
  1. ROACTEMRA [Suspect]
     Indication: SYSTEMIC LUPUS ERYTHEMATOSUS
     Route: 042
     Dates: start: 20101207
  2. ROACTEMRA [Suspect]
     Route: 065
     Dates: start: 20131015
  3. CELLCEPT [Concomitant]
     Indication: SYSTEMIC LUPUS ERYTHEMATOSUS
     Route: 048
     Dates: start: 20120103
  4. QUENSYL [Concomitant]
     Indication: SYSTEMIC LUPUS ERYTHEMATOSUS
     Route: 048
     Dates: start: 20081110
  5. PREDNISONE [Concomitant]
     Indication: SYSTEMIC LUPUS ERYTHEMATOSUS
     Route: 048
     Dates: start: 2000
  6. COTRIM FORTE [Concomitant]
     Indication: SYSTEMIC LUPUS ERYTHEMATOSUS
     Route: 048
     Dates: start: 2010
  7. PANTOZOL (GERMANY) [Concomitant]
     Route: 048
     Dates: start: 2010

REACTIONS (2)
  - Abscess limb [Recovered/Resolved]
  - Tendon rupture [Unknown]
